FAERS Safety Report 20019805 (Version 2)
Quarter: 2021Q4

REPORT INFORMATION
  Report Type: Report from Study
  Country: AR (occurrence: AR)
  Receive Date: 20211101
  Receipt Date: 20211119
  Transmission Date: 20220303
  Serious: Yes (Hospitalization)
  Sender: FDA-Public Use
  Company Number: AR-BIOGEN-2021BI01062580

PATIENT
  Age: 8 Year
  Sex: Female

DRUGS (2)
  1. SPINRAZA [Suspect]
     Active Substance: NUSINERSEN
     Indication: Spinal muscular atrophy
     Dosage: LOADING DOSE
     Route: 037
     Dates: start: 20210920
  2. SPINRAZA [Suspect]
     Active Substance: NUSINERSEN
     Dosage: LOADING DOSE
     Route: 037
     Dates: start: 20211021

REACTIONS (7)
  - Post procedural complication [Recovered/Resolved]
  - Tachycardia [Recovered/Resolved]
  - Post procedural fever [Recovered/Resolved]
  - Pyrexia [Recovered/Resolved]
  - Procedural vomiting [Recovered/Resolved]
  - Vomiting [Recovered/Resolved]
  - Application site haematoma [Not Recovered/Not Resolved]

NARRATIVE: CASE EVENT DATE: 20211021
